FAERS Safety Report 5326565-3 (Version None)
Quarter: 2007Q2

REPORT INFORMATION
  Report Type: 
  Country: None (occurrence: None)
  Receive Date: 20070510
  Receipt Date: 20070501
  Transmission Date: 20071010
  Serious: Yes (Life-Threatening, Hospitalization)
  Sender: FDA-Public Use
  Company Number: 07-000987

PATIENT
  Age: 46 Year
  Sex: Male

DRUGS (2)
  1. DORYX [Suspect]
     Indication: TOOTH INFECTION
     Dosage: 100 MG, BID, ORAL
     Route: 048
  2. PREDNISONE TAB [Concomitant]

REACTIONS (3)
  - ARTHRALGIA [None]
  - ORAL INTAKE REDUCED [None]
  - STEVENS-JOHNSON SYNDROME [None]
